FAERS Safety Report 6748741-5 (Version None)
Quarter: 2010Q2

REPORT INFORMATION
  Report Type: 
  Country: None (occurrence: None)
  Receive Date: 20100601
  Receipt Date: 20100518
  Transmission Date: 20101027
  Serious: Yes (Other)
  Sender: FDA-Public Use
  Company Number: PHHY2010FR08444

PATIENT
  Age: 55 Year
  Sex: Male
  Weight: 72 kg

DRUGS (1)
  1. RASILEZ [Suspect]
     Dosage: 150 MG, QD
     Dates: start: 20100117, end: 20100311

REACTIONS (6)
  - BREATH ODOUR [None]
  - CHEST DISCOMFORT [None]
  - HEART DISEASE CONGENITAL [None]
  - SUFFOCATION FEELING [None]
  - VENTRICULAR PRE-EXCITATION [None]
  - VENTRICULAR TACHYCARDIA [None]
